FAERS Safety Report 18507661 (Version 2)
Quarter: 2021Q1

REPORT INFORMATION
  Report Type: Spontaneous
  Country: US (occurrence: US)
  Receive Date: 20201116
  Receipt Date: 20210320
  Transmission Date: 20210419
  Serious: No
  Sender: FDA-Public Use
  Company Number: US-TAKEDA-2020TUS046682

PATIENT
  Sex: Male
  Weight: 86 kg

DRUGS (30)
  1. CUVITRU [Suspect]
     Active Substance: HUMAN IMMUNOGLOBULIN G
     Indication: IMMUNODEFICIENCY COMMON VARIABLE
     Dosage: 10 GRAM, 1/WEEK
     Route: 058
     Dates: start: 20201006
  2. EPINEPHRINE. [Concomitant]
     Active Substance: EPINEPHRINE
  3. RESTASIS [Concomitant]
     Active Substance: CYCLOSPORINE
  4. ALBUTEROL [SALBUTAMOL] [Concomitant]
     Active Substance: ALBUTEROL
  5. NEXIUM [Concomitant]
     Active Substance: ESOMEPRAZOLE MAGNESIUM
  6. VITAMIN D3 [Concomitant]
     Active Substance: CHOLECALCIFEROL
  7. ATENOLOL. [Concomitant]
     Active Substance: ATENOLOL
  8. FLONASE [Concomitant]
     Active Substance: FLUTICASONE PROPIONATE
  9. SYMBICORT [Concomitant]
     Active Substance: BUDESONIDE\FORMOTEROL FUMARATE DIHYDRATE
  10. MIRALAX [Concomitant]
     Active Substance: POLYETHYLENE GLYCOL 3350
  11. GLUCOSAMINE AND CHONDROITIN [Concomitant]
     Active Substance: CHONDROITIN SULFATE (BOVINE)\GLUCOSAMINE HYDROCHLORIDE
  12. COQ [Concomitant]
  13. PROBIOTIC [BIFIDOBACTERIUM INFANTIS;LACTOBACILLUS ACIDOPHILUS] [Concomitant]
  14. ACETAMINOPHEN. [Concomitant]
     Active Substance: ACETAMINOPHEN
  15. LMX4 [Concomitant]
     Active Substance: LIDOCAINE
  16. MUCINEX [Concomitant]
     Active Substance: GUAIFENESIN
  17. DIGESTIVE ENZYMES V COMPLEX [Concomitant]
  18. DIPHENHYDRAMINE. [Concomitant]
     Active Substance: DIPHENHYDRAMINE
  19. ALLEGRA [Concomitant]
     Active Substance: FEXOFENADINE HYDROCHLORIDE
  20. TYLENOL [Concomitant]
     Active Substance: ACETAMINOPHEN
  21. PRINIVIL [Concomitant]
     Active Substance: LISINOPRIL
  22. LYRICA [Concomitant]
     Active Substance: PREGABALIN
  23. VALIUM [Concomitant]
     Active Substance: DIAZEPAM
  24. OMEGA 3 [DOCOSAHEXAENOIC ACID;EICOSAPENTAENOIC ACID] [Concomitant]
     Active Substance: DOCONEXENT\ICOSAPENT
  25. PROVIGIL [Concomitant]
     Active Substance: MODAFINIL
  26. LIPITOR [Concomitant]
     Active Substance: ATORVASTATIN CALCIUM
  27. LEXAPRO [Concomitant]
     Active Substance: ESCITALOPRAM OXALATE
  28. ESTER C [ASCORBIC ACID] [Concomitant]
     Active Substance: ASCORBIC ACID
  29. PROSTATE COMPLEX [Concomitant]
  30. REGLAN [Concomitant]
     Active Substance: METOCLOPRAMIDE HYDROCHLORIDE

REACTIONS (4)
  - Infusion site swelling [Unknown]
  - Infusion site haemorrhage [Unknown]
  - Fatigue [Unknown]
  - Headache [Unknown]
